FAERS Safety Report 9851039 (Version 1)
Quarter: 2014Q1

REPORT INFORMATION
  Report Type: Spontaneous
  Country: US (occurrence: US)
  Receive Date: 20140128
  Receipt Date: 20140128
  Transmission Date: 20141002
  Serious: No
  Sender: FDA-Public Use
  Company Number: US-DYAX CORP.-2012DX000277

PATIENT
  Age: 66 Year
  Sex: Female
  Weight: 57.66 kg

DRUGS (4)
  1. KALBITOR [Suspect]
     Indication: HEREDITARY ANGIOEDEMA
     Route: 058
     Dates: start: 20120612, end: 20121227
  2. XANAX [Suspect]
     Indication: ANXIETY
  3. XANAX [Suspect]
     Indication: NERVOUSNESS
  4. HYDROCODONE [Concomitant]
     Indication: FIBROMYALGIA

REACTIONS (2)
  - Nervousness [Recovering/Resolving]
  - Chills [Recovering/Resolving]
